FAERS Safety Report 7333119-6 (Version None)
Quarter: 2011Q1

REPORT INFORMATION
  Report Type: 
  Country: None (occurrence: None)
  Receive Date: 20110304
  Receipt Date: 20110225
  Transmission Date: 20110831
  Serious: Yes (Other)
  Sender: FDA-Public Use
  Company Number: US-US-EMD SERONO, INC.-7004199

PATIENT
  Sex: Female
  Weight: 102 kg

DRUGS (2)
  1. METOPROLOL [Concomitant]
     Indication: SUPRAVENTRICULAR TACHYCARDIA
  2. REBIF [Suspect]
     Indication: MULTIPLE SCLEROSIS
     Route: 058
     Dates: start: 20091119

REACTIONS (3)
  - TYPE 2 DIABETES MELLITUS [None]
  - INJECTION SITE ERYTHEMA [None]
  - HYPERHIDROSIS [None]
